FAERS Safety Report 7367975-2 (Version None)
Quarter: 2011Q1

REPORT INFORMATION
  Report Type: 
  Country: None (occurrence: None)
  Receive Date: 20110322
  Receipt Date: 20110308
  Transmission Date: 20110831
  Serious: Yes (Hospitalization, Other)
  Sender: FDA-Public Use
  Company Number: PHHY2011US19607

PATIENT
  Age: 36 Year
  Sex: Female

DRUGS (6)
  1. LINEZOLID [Suspect]
  2. VENLAFAXINE [Interacting]
     Indication: DEPRESSION
  3. TRIMETHOPRIM [Concomitant]
     Dosage: UNK
  4. SULFAMETHOXAZOLE [Concomitant]
  5. LITHIUM CARBONATE [Interacting]
     Indication: BIPOLAR DISORDER
  6. IMIPRAMINE [Interacting]
     Indication: HEADACHE
     Dosage: UNK

REACTIONS (21)
  - HYPERREFLEXIA [None]
  - EMPYEMA [None]
  - ANXIETY [None]
  - STAPHYLOCOCCAL INFECTION [None]
  - DIARRHOEA [None]
  - HYPERTENSION [None]
  - CONVULSION [None]
  - SEROTONIN SYNDROME [None]
  - TACHYCARDIA [None]
  - HYPERHIDROSIS [None]
  - BREATH SOUNDS ABNORMAL [None]
  - GASTROINTESTINAL SOUNDS ABNORMAL [None]
  - TOXICITY TO VARIOUS AGENTS [None]
  - DRUG INTERACTION [None]
  - MYDRIASIS [None]
  - TREMOR [None]
  - UNRESPONSIVE TO STIMULI [None]
  - PUPILLARY REFLEX IMPAIRED [None]
  - RESPIRATORY RATE INCREASED [None]
  - HAEMOGLOBIN DECREASED [None]
  - MUSCLE TWITCHING [None]
